FAERS Safety Report 23980708 (Version 2)
Quarter: 2024Q3

REPORT INFORMATION
  Report Type: Spontaneous
  Country: CA (occurrence: None)
  Receive Date: 20240617
  Receipt Date: 20240722
  Transmission Date: 20241017
  Serious: Yes (Other)
  Sender: ORION
  Company Number: CA-PFIZER INC-202400190577

PATIENT
  Age: 68 Year
  Sex: Female
  Weight: 74.8 kg

DRUGS (24)
  1. METHOTREXATE [Suspect]
     Active Substance: METHOTREXATE
     Indication: Rheumatoid arthritis
     Dates: start: 2022, end: 2022
  2. METHOTREXATE [Suspect]
     Active Substance: METHOTREXATE
     Dates: start: 2022
  3. METHOTREXATE [Suspect]
     Active Substance: METHOTREXATE
     Dates: start: 2014
  4. METHOTREXATE [Suspect]
     Active Substance: METHOTREXATE
     Dates: start: 20220406
  5. METHOTREXATE [Suspect]
     Active Substance: METHOTREXATE
  6. METHOTREXATE [Suspect]
     Active Substance: METHOTREXATE
  7. LEFLUNOMIDE [Suspect]
     Active Substance: LEFLUNOMIDE
     Indication: Rheumatoid arthritis
     Dosage: DISCONTINUED WHILE ON CHEMO (OFF SINCE MIDDLE OF AUGUST)
     Dates: end: 202208
  8. LEFLUNOMIDE [Suspect]
     Active Substance: LEFLUNOMIDE
     Dosage: STOPPED DUE TO NEUTROPENIA
     Dates: start: 20220923
  9. ATORVASTATIN [Concomitant]
     Active Substance: ATORVASTATIN
  10. ATORVASTATIN [Concomitant]
     Active Substance: ATORVASTATIN
  11. BISOPROLOL [Concomitant]
     Active Substance: BISOPROLOL\BISOPROLOL FUMARATE
     Indication: Hypertension
     Dosage: 1 AS NECESSARY
  12. BISOPROLOL [Concomitant]
     Active Substance: BISOPROLOL\BISOPROLOL FUMARATE
  13. ENTRESTO [Concomitant]
     Active Substance: SACUBITRIL\VALSARTAN
     Indication: Hypertension
     Dosage: 1 AS NECESSARY
  14. ENTRESTO [Concomitant]
     Active Substance: SACUBITRIL\VALSARTAN
     Dosage: 49-51 MG PER TABLET
  15. FOLIC ACID [Concomitant]
     Active Substance: FOLIC ACID
  16. FOLIC ACID [Concomitant]
     Active Substance: FOLIC ACID
  17. IRON [Concomitant]
     Active Substance: IRON
     Indication: Anaemia
     Dosage: 1 AS NECESSARY
  18. DOCONEXENT\ICOSAPENT [Concomitant]
     Active Substance: DOCONEXENT\ICOSAPENT
  19. EGG SHELL MEMBRANE [Concomitant]
     Active Substance: EGG SHELL MEMBRANE
  20. EGG SHELL MEMBRANE [Concomitant]
     Active Substance: EGG SHELL MEMBRANE
  21. SULFASALAZINE [Concomitant]
     Active Substance: SULFASALAZINE
     Indication: Rheumatoid arthritis
     Dosage: DISCONTINUED DUE TO RENAL DECLINE
     Dates: start: 20200527
  22. POLYRIDE FE [Concomitant]
  23. RITUXIMAB [Concomitant]
     Active Substance: RITUXIMAB
     Dosage: 10 MG/ML
  24. VITAMINS NOS [Concomitant]
     Active Substance: VITAMINS

REACTIONS (4)
  - Diffuse large B-cell lymphoma [Recovered/Resolved]
  - Thrombocytopenia [Unknown]
  - Neutropenia [Unknown]
  - Rheumatoid arthritis [Not Recovered/Not Resolved]

NARRATIVE: CASE EVENT DATE: 20220101
